FAERS Safety Report 14374914 (Version 3)
Quarter: 2018Q1

REPORT INFORMATION
  Report Type: Spontaneous
  Country: DE (occurrence: DE)
  Receive Date: 20180111
  Receipt Date: 20180216
  Transmission Date: 20180509
  Serious: Yes (Hospitalization, Other)
  Sender: FDA-Public Use
  Company Number: DE-MYLANLABS-2018M1000350

PATIENT
  Age: 2 Year
  Sex: Male
  Weight: 12.2 kg

DRUGS (60)
  1. ASPARAGINASE [Suspect]
     Active Substance: ASPARAGINASE
     Indication: PHILADELPHIA CHROMOSOME POSITIVE
     Dosage: 5400 IU, UNK
     Route: 042
  2. ASPARAGINASE [Suspect]
     Active Substance: ASPARAGINASE
     Dosage: 1300 IU, QD
     Route: 042
     Dates: start: 20160303
  3. VINCRISTINE [Suspect]
     Active Substance: VINCRISTINE
     Dosage: 0.8 MG, QD
     Route: 042
     Dates: start: 20160627
  4. VINCRISTINE [Suspect]
     Active Substance: VINCRISTINE
     Dosage: 0.8 MG, QD
     Route: 042
     Dates: start: 20160712
  5. DOXORUBICIN [Suspect]
     Active Substance: DOXORUBICIN
     Dosage: 13.5 MG, UNK
     Route: 042
  6. CYTARABINE. [Suspect]
     Active Substance: CYTARABINE
     Dosage: 42 MG, UNK
     Route: 042
  7. CYTARABINE. [Suspect]
     Active Substance: CYTARABINE
     Dosage: 42 MG, UNK
     Route: 042
  8. CYCLOPHOSPHAMIDE. [Suspect]
     Active Substance: CYCLOPHOSPHAMIDE
     Dosage: 570 MG, UNK
     Route: 042
     Dates: start: 20160730, end: 20160730
  9. GLIVEC [Suspect]
     Active Substance: IMATINIB MESYLATE
     Indication: ACUTE LYMPHOCYTIC LEUKAEMIA
     Dosage: 150 MG, UNK
     Route: 048
     Dates: start: 20150921, end: 20170307
  10. GLIVEC [Suspect]
     Active Substance: IMATINIB MESYLATE
     Indication: PHILADELPHIA CHROMOSOME POSITIVE
  11. METHOTREXATE. [Suspect]
     Active Substance: METHOTREXATE
     Dosage: UNK
     Route: 037
  12. ASPARAGINASE [Suspect]
     Active Substance: ASPARAGINASE
     Dosage: 5400 IU, UNK
     Route: 042
  13. ASPARAGINASE [Suspect]
     Active Substance: ASPARAGINASE
     Dosage: 5400 IU, UNK
     Route: 042
  14. VINCRISTINE [Suspect]
     Active Substance: VINCRISTINE
     Dosage: 0.8 MG, QD
     Route: 042
     Dates: start: 20160324
  15. DOXORUBICIN [Suspect]
     Active Substance: DOXORUBICIN
     Indication: ACUTE LYMPHOCYTIC LEUKAEMIA
     Dosage: 13.5 MG, UNK
     Route: 042
  16. DOXORUBICIN [Suspect]
     Active Substance: DOXORUBICIN
     Dosage: 13.5 MG, UNK
     Route: 042
  17. CYTARABINE. [Suspect]
     Active Substance: CYTARABINE
     Indication: PHILADELPHIA CHROMOSOME POSITIVE
     Dosage: 41 MG, QD
     Route: 042
     Dates: start: 20151102, end: 20151105
  18. CYTARABINE. [Suspect]
     Active Substance: CYTARABINE
     Dosage: 1040 MG, UNK
     Route: 042
     Dates: start: 20160204, end: 20160206
  19. CYCLOPHOSPHAMIDE. [Suspect]
     Active Substance: CYCLOPHOSPHAMIDE
     Dosage: 110 MG, UNK
     Route: 042
     Dates: start: 20151219, end: 20151221
  20. VINCRISTINE [Suspect]
     Active Substance: VINCRISTINE
     Dosage: 0.8 MG, QD
     Route: 042
     Dates: start: 20160303, end: 20160303
  21. DOXORUBICIN [Suspect]
     Active Substance: DOXORUBICIN
     Dosage: 13.5 MG, UNK
     Route: 042
  22. DOXORUBICIN [Suspect]
     Active Substance: DOXORUBICIN
     Dosage: 13.5 MG, UNK
     Route: 042
  23. CYTARABINE. [Suspect]
     Active Substance: CYTARABINE
     Dosage: 42 MG, UNK
     Route: 042
  24. CYTARABINE. [Suspect]
     Active Substance: CYTARABINE
     Dosage: 41 MG, QD
     Route: 042
     Dates: start: 20151109, end: 20151112
  25. CYTARABINE. [Suspect]
     Active Substance: CYTARABINE
     Dosage: UNK
     Route: 037
     Dates: start: 20160208, end: 20160208
  26. CYCLOPHOSPHAMIDE. [Suspect]
     Active Substance: CYCLOPHOSPHAMIDE
     Dosage: 550 MG, UNK
     Route: 042
     Dates: start: 20160730, end: 20160730
  27. VINDESINE [Suspect]
     Active Substance: VINDESINE
     Indication: PHILADELPHIA CHROMOSOME POSITIVE
     Dosage: 1.6 MG, UNK
     Route: 042
     Dates: start: 20160119, end: 20160119
  28. METHOTREXATE. [Suspect]
     Active Substance: METHOTREXATE
     Indication: ACUTE LYMPHOCYTIC LEUKAEMIA
     Dosage: 2700 MG, QD
     Route: 042
     Dates: start: 20151218, end: 20151219
  29. ASPARAGINASE [Suspect]
     Active Substance: ASPARAGINASE
     Dosage: 5400 IU, UNK
     Route: 042
  30. ASPARAGINASE [Suspect]
     Active Substance: ASPARAGINASE
     Dosage: 5400 IU, UNK
     Route: 042
  31. ASPARAGINASE [Suspect]
     Active Substance: ASPARAGINASE
     Dosage: 5400 IU, UNK
     Route: 042
  32. ASPARAGINASE [Suspect]
     Active Substance: ASPARAGINASE
     Dosage: 13500 IU, QD
     Route: 042
     Dates: start: 20151223, end: 20151223
  33. DOXORUBICIN [Suspect]
     Active Substance: DOXORUBICIN
     Dosage: 13.5 MG, UNK
     Route: 042
  34. CYTARABINE. [Suspect]
     Active Substance: CYTARABINE
     Dosage: 41 MG, QD
     Route: 042
     Dates: start: 20151019, end: 20151222
  35. ASPARAGINASE [Suspect]
     Active Substance: ASPARAGINASE
     Indication: ACUTE LYMPHOCYTIC LEUKAEMIA
     Dosage: 5400 IU, UNK
     Route: 042
  36. ASPARAGINASE [Suspect]
     Active Substance: ASPARAGINASE
     Dosage: 5400 IU, UNK
     Route: 042
  37. VINCRISTINE [Suspect]
     Active Substance: VINCRISTINE
     Indication: PHILADELPHIA CHROMOSOME POSITIVE
     Dosage: 0.8 MG, QD
     Route: 042
     Dates: start: 20151223, end: 20151223
  38. VINCRISTINE [Suspect]
     Active Substance: VINCRISTINE
     Dosage: 0.8 MG, QD
     Route: 042
     Dates: start: 20160317
  39. DOXORUBICIN [Suspect]
     Active Substance: DOXORUBICIN
     Dosage: 13.5 MG, UNK
     Route: 042
  40. CYTARABINE. [Suspect]
     Active Substance: CYTARABINE
     Indication: ACUTE LYMPHOCYTIC LEUKAEMIA
     Dosage: 42 MG, UNK
     Route: 042
  41. CYTARABINE. [Suspect]
     Active Substance: CYTARABINE
     Dosage: 2160 MG, QD
     Route: 042
     Dates: start: 20151221
  42. CYCLOPHOSPHAMIDE. [Suspect]
     Active Substance: CYCLOPHOSPHAMIDE
     Indication: PHILADELPHIA CHROMOSOME POSITIVE
     Dosage: 550 MG, QD
     Route: 042
     Dates: start: 20151203, end: 20151203
  43. DAUNORUBICIN [Suspect]
     Active Substance: DAUNORUBICIN
     Indication: ACUTE LYMPHOCYTIC LEUKAEMIA
  44. IFOSFAMIDE. [Suspect]
     Active Substance: IFOSFAMIDE
     Indication: PHILADELPHIA CHROMOSOME POSITIVE
  45. ETOPOSIDE. [Suspect]
     Active Substance: ETOPOSIDE
     Indication: PHILADELPHIA CHROMOSOME POSITIVE
  46. VINCRISTINE [Suspect]
     Active Substance: VINCRISTINE
     Indication: ACUTE LYMPHOCYTIC LEUKAEMIA
     Dosage: 0.8 MG, QD
     Route: 042
     Dates: start: 20151218
  47. VINCRISTINE [Suspect]
     Active Substance: VINCRISTINE
     Dosage: 0.8 MG, QD
     Route: 042
     Dates: start: 20160704
  48. DOXORUBICIN [Suspect]
     Active Substance: DOXORUBICIN
     Indication: PHILADELPHIA CHROMOSOME POSITIVE
     Dosage: 13.5 MG, UNK
     Route: 042
  49. ASPARAGINASE [Suspect]
     Active Substance: ASPARAGINASE
     Dosage: 5400 IU, UNK
     Route: 042
  50. VINCRISTINE [Suspect]
     Active Substance: VINCRISTINE
     Dosage: 0.8 MG, QD
     Route: 042
     Dates: start: 20160310
  51. VINCRISTINE [Suspect]
     Active Substance: VINCRISTINE
     Dosage: 0.8 MG, QD
     Route: 042
     Dates: start: 20160620
  52. CYCLOPHOSPHAMIDE. [Suspect]
     Active Substance: CYCLOPHOSPHAMIDE
     Dosage: 560 MG, UNK
     Route: 042
     Dates: start: 20160416, end: 20160416
  53. METHOTREXATE. [Suspect]
     Active Substance: METHOTREXATE
     Indication: PHILADELPHIA CHROMOSOME POSITIVE
     Dosage: 2600 MG, QD
     Route: 042
     Dates: start: 20160114, end: 20160115
  54. DAUNORUBICIN [Suspect]
     Active Substance: DAUNORUBICIN
     Indication: PHILADELPHIA CHROMOSOME POSITIVE
     Dosage: 16 MG, QD
     Route: 042
     Dates: start: 20160118, end: 20160119
  55. IFOSFAMIDE. [Suspect]
     Active Substance: IFOSFAMIDE
     Indication: ACUTE LYMPHOCYTIC LEUKAEMIA
     Dosage: 416 MG, QD
     Route: 042
     Dates: start: 20160115, end: 20160117
  56. ASPARAGINASE [Suspect]
     Active Substance: ASPARAGINASE
     Dosage: 13000 IU, QD
     Route: 042
     Dates: start: 20160209, end: 20160209
  57. ETOPOSIDE. [Suspect]
     Active Substance: ETOPOSIDE
     Indication: ACUTE LYMPHOCYTIC LEUKAEMIA
     Dosage: 52 MG, UNK
     Route: 042
     Dates: start: 20160206, end: 20160208
  58. CYTARABINE. [Suspect]
     Active Substance: CYTARABINE
     Dosage: 41 MG, QD
     Route: 042
     Dates: start: 20151026, end: 20151029
  59. CYCLOPHOSPHAMIDE. [Suspect]
     Active Substance: CYCLOPHOSPHAMIDE
     Indication: ACUTE LYMPHOCYTIC LEUKAEMIA
     Dosage: 550 MG, QD
     Route: 042
     Dates: start: 20151017, end: 20151017
  60. VINDESINE [Suspect]
     Active Substance: VINDESINE
     Indication: ACUTE LYMPHOCYTIC LEUKAEMIA
     Dosage: 1.6 MG, UNK
     Route: 042

REACTIONS (12)
  - Muscular weakness [Unknown]
  - Pruritus [Unknown]
  - Hypoxia [Unknown]
  - Upper respiratory tract infection [Recovered/Resolved]
  - Neutropenia [Recovered/Resolved]
  - Stomatitis [Unknown]
  - Urinary tract infection [Unknown]
  - Infectious colitis [Unknown]
  - Febrile neutropenia [Recovered/Resolved]
  - Constipation [Unknown]
  - Lymphopenia [Unknown]
  - Pyrexia [Recovered/Resolved]

NARRATIVE: CASE EVENT DATE: 20151110
